FAERS Safety Report 5504007-2 (Version None)
Quarter: 2007Q4

REPORT INFORMATION
  Report Type: 
  Country: None (occurrence: None)
  Receive Date: 20071101
  Receipt Date: 20071023
  Transmission Date: 20080405
  Serious: Yes (Other)
  Sender: FDA-Public Use
  Company Number: US-JNJFOC-20071006334

PATIENT
  Sex: Female
  Weight: 106.6 kg

DRUGS (5)
  1. DURAGESIC-100 [Suspect]
     Route: 062
  2. DURAGESIC-100 [Suspect]
     Indication: FIBROMYALGIA
     Route: 062
  3. DIOVAN [Concomitant]
     Indication: BLOOD PRESSURE
     Route: 048
  4. PAXIL [Concomitant]
     Indication: ANXIETY
     Route: 048
  5. PAXIL [Concomitant]
     Indication: DEPRESSION
     Route: 048

REACTIONS (8)
  - DIABETES MELLITUS [None]
  - DRUG ADMINISTERED AT INAPPROPRIATE SITE [None]
  - LETHARGY [None]
  - MUSCLE SPASMS [None]
  - NEURALGIA [None]
  - PAIN [None]
  - UPPER RESPIRATORY TRACT INFECTION [None]
  - WRONG TECHNIQUE IN DRUG USAGE PROCESS [None]
